FAERS Safety Report 9453986 (Version 2)
Quarter: 2013Q4

REPORT INFORMATION
  Report Type: Spontaneous
  Country: FR (occurrence: FR)
  Receive Date: 20130812
  Receipt Date: 20131105
  Transmission Date: 20140711
  Serious: Yes (Hospitalization, Other)
  Sender: FDA-Public Use
  Company Number: FR-PFIZER INC-2013229754

PATIENT
  Age: 52 Year
  Sex: Male

DRUGS (5)
  1. TAHOR [Suspect]
     Indication: HYPERCHOLESTEROLAEMIA
     Dosage: UNK
     Route: 048
  2. CRESTOR [Suspect]
     Indication: HYPERCHOLESTEROLAEMIA
     Dosage: 10 MG, 1X/DAY
     Route: 048
     Dates: end: 20130416
  3. KARDEGIC [Concomitant]
     Dosage: 75 MG, UNK
     Route: 048
  4. LAMALINE [Concomitant]
     Indication: PAIN
     Dosage: IF NEEDED
  5. STILNOX [Concomitant]
     Dosage: 10 MG, AS NEEDED
     Route: 048

REACTIONS (2)
  - Myalgia [Recovered/Resolved]
  - Bronchial carcinoma [Unknown]
